FAERS Safety Report 9125090 (Version 1)
Quarter: 2013Q1

REPORT INFORMATION
  Report Type: Spontaneous
  Country: US (occurrence: US)
  Receive Date: 20130117
  Receipt Date: 20130117
  Transmission Date: 20140127
  Serious: Yes (Other)
  Sender: FDA-Public Use
  Company Number: US-PFIZER INC-2013019746

PATIENT
  Age: 46 Year
  Sex: Female
  Weight: 138 kg

DRUGS (8)
  1. LYRICA [Suspect]
     Indication: FIBROMYALGIA
     Dosage: 200 MG, 2X/DAY
     Dates: end: 20121224
  2. HYDROCORTISONE [Suspect]
     Indication: PRURITUS
     Dosage: UNK
     Dates: start: 201212
  3. LAMOTRIGINE [Suspect]
     Indication: DEPRESSION
     Dosage: 100 MG, DAILY
     Dates: start: 2011
  4. LAMOTRIGINE [Suspect]
     Dosage: 100 MG, 2X/DAY
     Dates: start: 2012
  5. ATARAX [Suspect]
     Indication: PRURITUS
     Dosage: 25 MG, EVERY 8 HOURS
     Dates: start: 201212
  6. BENADRYL [Suspect]
     Indication: PRURITUS
     Dosage: UNK
     Dates: start: 201212
  7. CYMBALTA [Suspect]
     Indication: DEPRESSION
     Dosage: 30 MG, DAILY
     Dates: start: 2007
  8. PAXIL [Suspect]
     Indication: DEPRESSION
     Dosage: 30 MG, DAILY
     Dates: start: 2012

REACTIONS (5)
  - Hypertension [Unknown]
  - Drug ineffective [Unknown]
  - Vision blurred [Unknown]
  - Depression [Unknown]
  - Pruritus [Recovered/Resolved]
